FAERS Safety Report 16150457 (Version 2)
Quarter: 2019Q2

REPORT INFORMATION
  Report Type: Report from Study
  Country: US (occurrence: US)
  Receive Date: 20190402
  Receipt Date: 20190418
  Transmission Date: 20190711
  Serious: Yes (Death)
  Sender: FDA-Public Use
  Company Number: US-ACTELION-A-NJ2019-188432

PATIENT
  Age: 16 Year
  Sex: Female

DRUGS (2)
  1. TRACLEER [Suspect]
     Active Substance: BOSENTAN
     Indication: PULMONARY ARTERIAL HYPERTENSION
     Dosage: 62.5 MG, BID
     Route: 048
  2. TRACLEER [Suspect]
     Active Substance: BOSENTAN
     Dosage: 125 MG, BID
     Route: 048

REACTIONS (2)
  - Pulmonary arterial hypertension [Fatal]
  - Disease progression [Fatal]

NARRATIVE: CASE EVENT DATE: 20190319
